FAERS Safety Report 10524651 (Version 1)
Quarter: 2014Q4

REPORT INFORMATION
  Report Type: Spontaneous
  Country: IT (occurrence: IT)
  Receive Date: 20141017
  Receipt Date: 20141017
  Transmission Date: 20150528
  Serious: Yes (Hospitalization)
  Sender: FDA-Public Use
  Company Number: IT-BAYER-2014-153387

PATIENT
  Age: 92 Year
  Sex: Female

DRUGS (6)
  1. FUROSEMIDE. [Concomitant]
     Active Substance: FUROSEMIDE
     Dosage: 25 MG, DAILY DOSE
     Route: 048
  2. LORTAAN [Concomitant]
     Active Substance: LOSARTAN POTASSIUM
     Dosage: 50 MG, DAILY DOSE
     Route: 048
  3. TAVOR [OXYBUTYNIN HYDROCHLORIDE] [Concomitant]
     Dosage: 1 MG, DAILY DOSE
     Route: 048
  4. CARDIOASPIRIN [Suspect]
     Active Substance: ASPIRIN
     Indication: THROMBOSIS PROPHYLAXIS
     Dosage: 100 MG, DAILY DOSE
     Route: 048
     Dates: start: 20140101, end: 20140808
  5. LANTUS [Concomitant]
     Active Substance: INSULIN GLARGINE
     Dosage: 6 IU, DAILY DOSE
     Route: 058
  6. HUMALOG [Concomitant]
     Active Substance: INSULIN LISPRO
     Dosage: 18 IU, DAILY DOSE
     Route: 058

REACTIONS (2)
  - Asthenia [Unknown]
  - Malaise [Unknown]

NARRATIVE: CASE EVENT DATE: 20140808
